FAERS Safety Report 24316273 (Version 1)
Quarter: 2024Q3

REPORT INFORMATION
  Report Type: Other
  Country: CA (occurrence: CA)
  Receive Date: 20240913
  Receipt Date: 20240913
  Transmission Date: 20241017
  Serious: Yes (Death, Hospitalization, Other)
  Sender: BIONPHARMA
  Company Number: CA-Bion-013784

PATIENT
  Age: 74 Year
  Sex: Female

DRUGS (18)
  1. DEXAMETHASONE [Suspect]
     Active Substance: DEXAMETHASONE
     Indication: Evidence based treatment
  2. AZITHROMYCIN [Suspect]
     Active Substance: AZITHROMYCIN
     Indication: Meningoencephalitis amoebic
  3. RIFAMPIN [Concomitant]
     Active Substance: RIFAMPIN
     Indication: Evidence based treatment
  4. ISONIAZID [Concomitant]
     Active Substance: ISONIAZID
     Indication: Evidence based treatment
  5. PYRAZINAMIDE [Concomitant]
     Active Substance: PYRAZINAMIDE
     Indication: Evidence based treatment
  6. ETHAMBUTOL [Concomitant]
     Active Substance: ETHAMBUTOL HYDROCHLORIDE
     Indication: Evidence based treatment
  7. COTRIMOXAZOLE [Concomitant]
     Active Substance: SULFAMETHOXAZOLE\TRIMETHOPRIM
     Indication: Antifungal prophylaxis
  8. PENTAMIDINE [Concomitant]
     Active Substance: PENTAMIDINE
     Indication: Meningoencephalitis amoebic
  9. FLUCONAZOLE [Concomitant]
     Active Substance: FLUCONAZOLE
     Indication: Meningoencephalitis amoebic
  10. FLUCYTOSINE [Concomitant]
     Active Substance: FLUCYTOSINE
     Indication: Meningoencephalitis amoebic
  11. MILTEFOSINE [Concomitant]
     Active Substance: MILTEFOSINE
     Indication: Meningoencephalitis amoebic
  12. AZITHROMYCIN [Suspect]
     Active Substance: AZITHROMYCIN
     Indication: Acanthamoeba infection
  13. MILTEFOSINE [Concomitant]
     Active Substance: MILTEFOSINE
     Indication: Acanthamoeba infection
  14. FLUCYTOSINE [Concomitant]
     Active Substance: FLUCYTOSINE
     Indication: Acanthamoeba infection
  15. FLUCONAZOLE [Concomitant]
     Active Substance: FLUCONAZOLE
     Indication: Acanthamoeba infection
  16. PENTAMIDINE [Concomitant]
     Active Substance: PENTAMIDINE
     Indication: Acanthamoeba infection
  17. COTRIMOXAZOLE [Concomitant]
     Active Substance: SULFAMETHOXAZOLE\TRIMETHOPRIM
     Indication: Acanthamoeba infection
  18. COTRIMOXAZOLE [Concomitant]
     Active Substance: SULFAMETHOXAZOLE\TRIMETHOPRIM
     Indication: Meningoencephalitis amoebic

REACTIONS (2)
  - Drug-induced liver injury [Recovered/Resolved]
  - Drug ineffective for unapproved indication [Fatal]
